FAERS Safety Report 13202805 (Version 4)
Quarter: 2017Q3

REPORT INFORMATION
  Report Type: Report from Study
  Country: JP (occurrence: JP)
  Receive Date: 20170208
  Receipt Date: 20170809
  Transmission Date: 20171127
  Serious: Yes (Death, Hospitalization, Other)
  Sender: FDA-Public Use
  Company Number: JP-EISAI MEDICAL RESEARCH-EC-2017-024664

PATIENT
  Age: 69 Year
  Sex: Female

DRUGS (3)
  1. LENVIMA [Suspect]
     Active Substance: LENVATINIB
     Indication: PAPILLARY THYROID CANCER
     Route: 048
     Dates: start: 20170126, end: 20170131
  2. EDIROL [Concomitant]
     Active Substance: ELDECALCITOL
  3. ELIQUIS [Concomitant]
     Active Substance: APIXABAN

REACTIONS (2)
  - Posterior reversible encephalopathy syndrome [Recovering/Resolving]
  - Hypertension [Recovering/Resolving]

NARRATIVE: CASE EVENT DATE: 20170131
